FAERS Safety Report 18031064 (Version 1)
Quarter: 2020Q3

REPORT INFORMATION
  Report Type: Spontaneous
  Country: CA (occurrence: CA)
  Receive Date: 20200715
  Receipt Date: 20200715
  Transmission Date: 20201103
  Serious: Yes (Hospitalization)
  Sender: FDA-Public Use
  Company Number: CA-ROCHE-2639267

PATIENT
  Age: 79 Year
  Sex: Female
  Weight: 55 kg

DRUGS (15)
  1. PREDNISONE. [Suspect]
     Active Substance: PREDNISONE
     Indication: LYMPHOMA
     Dosage: THERAPY DURATION: 21.0 DAYS
     Route: 065
  2. ASA [Concomitant]
     Active Substance: ASPIRIN
  3. CYCLOPHOSPHAMIDE. [Suspect]
     Active Substance: CYCLOPHOSPHAMIDE
     Indication: PRODUCT USED FOR UNKNOWN INDICATION
     Dosage: THERAPY DURATION: 21.0 DAYS
     Route: 042
  4. FILGRASTIM [Concomitant]
     Active Substance: FILGRASTIM
  5. TYLENOL [Concomitant]
     Active Substance: ACETAMINOPHEN
  6. RITUXIMAB. [Suspect]
     Active Substance: RITUXIMAB
     Indication: PRODUCT USED FOR UNKNOWN INDICATION
     Dosage: THERAPY DURATION: 21.0 DAYS
     Route: 042
  7. DILAUDID [Concomitant]
     Active Substance: HYDROMORPHONE HYDROCHLORIDE
  8. NORVASC [Concomitant]
     Active Substance: AMLODIPINE BESYLATE
  9. SERAX (CANADA) [Concomitant]
  10. VINCRISTINE SULFATE. [Suspect]
     Active Substance: VINCRISTINE SULFATE
     Indication: LYMPHOMA
     Dosage: THERAPY DURATION: 21.0 DAYS
     Route: 042
  11. STEMETIL [Concomitant]
     Active Substance: PROCHLORPERAZINE
  12. SENOKOT [Concomitant]
     Active Substance: SENNOSIDES
  13. DILTIAZEM. [Concomitant]
     Active Substance: DILTIAZEM
  14. DOXORUBICIN HYDROCHLORIDE INJECTION [Suspect]
     Active Substance: DOXORUBICIN HYDROCHLORIDE
     Indication: LYMPHOMA
     Dosage: THERAPY DURATION: 21.0 DAYS
     Route: 042
  15. ELIQUIS [Concomitant]
     Active Substance: APIXABAN

REACTIONS (3)
  - Bacterial translocation [Not Recovered/Not Resolved]
  - Abdominal sepsis [Not Recovered/Not Resolved]
  - Colitis [Not Recovered/Not Resolved]
